FAERS Safety Report 15656286 (Version 1)
Quarter: 2018Q4

REPORT INFORMATION
  Report Type: Spontaneous
  Country: CN (occurrence: CN)
  Receive Date: 20181126
  Receipt Date: 20181126
  Transmission Date: 20190205
  Serious: Yes (Other)
  Sender: FDA-Public Use
  Company Number: CN-JNJFOC-20181121992

PATIENT
  Age: 70 Year
  Sex: Female

DRUGS (2)
  1. INVOKANA [Suspect]
     Active Substance: CANAGLIFLOZIN
     Indication: DIABETES MELLITUS
     Route: 065
     Dates: start: 201808, end: 201809
  2. INSULIN ASPART [Concomitant]
     Active Substance: INSULIN ASPART
     Route: 051

REACTIONS (2)
  - Urinary tract infection [Unknown]
  - Gonorrhoea [Unknown]

NARRATIVE: CASE EVENT DATE: 2018
